FAERS Safety Report 16042234 (Version 2)
Quarter: 2019Q1

REPORT INFORMATION
  Report Type: Spontaneous
  Country: LB (occurrence: LB)
  Receive Date: 20190306
  Receipt Date: 20190325
  Transmission Date: 20190418
  Serious: Yes (Other)
  Sender: FDA-Public Use
  Company Number: LB-ABBVIE-19S-093-2687797-00

PATIENT
  Weight: 3 kg

DRUGS (1)
  1. ULTANE [Suspect]
     Active Substance: SEVOFLURANE
     Indication: PRODUCT USED FOR UNKNOWN INDICATION
     Dosage: MAC LEVELS USED: 8%,6% THEN 4 %
     Route: 055

REACTIONS (1)
  - Delayed recovery from anaesthesia [Recovered/Resolved]
